FAERS Safety Report 18761450 (Version 2)
Quarter: 2021Q1

REPORT INFORMATION
  Report Type: Spontaneous
  Country: US (occurrence: US)
  Receive Date: 20210119
  Receipt Date: 20210219
  Transmission Date: 20210419
  Serious: Yes (Hospitalization)
  Sender: FDA-Public Use
  Company Number: US-BEH-2021127351

PATIENT
  Age: 2 Year
  Sex: Male
  Weight: 9.3 kg

DRUGS (1)
  1. HIZENTRA [Suspect]
     Active Substance: HUMAN IMMUNOGLOBULIN G
     Indication: HYPOGAMMAGLOBULINAEMIA
     Dosage: 4 GRAM, QOW
     Route: 058
     Dates: start: 2020

REACTIONS (3)
  - Weight decreased [Unknown]
  - Candida infection [Unknown]
  - Failure to thrive [Unknown]

NARRATIVE: CASE EVENT DATE: 20210104
